FAERS Safety Report 9414479 (Version 3)
Quarter: 2013Q3

REPORT INFORMATION
  Report Type: Report from Study
  Country: IT (occurrence: IT)
  Receive Date: 20130723
  Receipt Date: 20130816
  Transmission Date: 20140515
  Serious: Yes (Other)
  Sender: FDA-Public Use
  Company Number: IT-009507513-1307ITA004555

PATIENT
  Age: 48 Year
  Sex: Female

DRUGS (4)
  1. BOCEPREVIR [Suspect]
     Indication: HEPATIC CIRRHOSIS
     Dosage: 2400 MG, QD
     Route: 048
     Dates: start: 20120529, end: 20130402
  2. PEGASYS [Suspect]
     Indication: HEPATIC CIRRHOSIS
     Dosage: 180 MICROGRAM QW, VIAL
     Route: 058
     Dates: start: 20120423, end: 20130402
  3. COPEGUS [Suspect]
     Indication: HEPATIC CIRRHOSIS
     Dosage: 1000 MG, QD
     Route: 048
     Dates: start: 20120423
  4. COPEGUS [Suspect]
     Dosage: 600 MG, QD
     Route: 048
     Dates: end: 20130402

REACTIONS (1)
  - Hepatitis C [Unknown]
